FAERS Safety Report 10098710 (Version 3)
Quarter: 2015Q3

REPORT INFORMATION
  Report Type: Report from Study
  Country: JP (occurrence: JP)
  Receive Date: 20140423
  Receipt Date: 20150918
  Transmission Date: 20151125
  Serious: Yes (Death, Life-Threatening, Hospitalization)
  Sender: FDA-Public Use
  Company Number: JP-SA-THYM-1001085

PATIENT
  Age: 35 Year
  Sex: Male
  Weight: 59 kg

DRUGS (20)
  1. FILGRASTIM [Concomitant]
     Active Substance: FILGRASTIM
     Indication: APLASTIC ANAEMIA
     Dosage: 300 U/G, UNK DOSE:300 U/G
     Route: 042
     Dates: start: 20090622, end: 20090626
  2. LIDOCAINE. [Concomitant]
     Active Substance: LIDOCAINE
     Dosage: UNK
     Route: 065
     Dates: start: 20090629, end: 20090629
  3. SODIUM GUALENATE [Concomitant]
     Active Substance: SODIUM GUALENATE
     Indication: INFECTION PROPHYLAXIS
     Dosage: UNK
     Route: 065
     Dates: start: 20090622, end: 20090628
  4. FLUCONAZOLE. [Concomitant]
     Active Substance: FLUCONAZOLE
     Indication: INFECTION PROPHYLAXIS
     Dosage: UNK
     Dates: start: 20090628
  5. METHYLPREDNISOLONE SODIUM SUCCINATE. [Concomitant]
     Active Substance: METHYLPREDNISOLONE SODIUM SUCCINATE
     Indication: APLASTIC ANAEMIA
     Dosage: 125 MG, QD
     Route: 065
     Dates: start: 20090625, end: 20090629
  6. CICLOSPORIN [Concomitant]
     Active Substance: CYCLOSPORINE
     Indication: APLASTIC ANAEMIA
     Dosage: 300 MG, BID
     Route: 048
     Dates: start: 20090622, end: 20090628
  7. DOBUTAMINE HYDROCHLORIDE. [Concomitant]
     Active Substance: DOBUTAMINE HYDROCHLORIDE
     Dosage: UNK
     Dates: start: 20090629, end: 20090629
  8. EPINEPHRINE. [Concomitant]
     Active Substance: EPINEPHRINE
     Dosage: UNK
     Dates: start: 20090629, end: 20090629
  9. METHYLPREDNISOLONE SODIUM SUCCINATE. [Concomitant]
     Active Substance: METHYLPREDNISOLONE SODIUM SUCCINATE
     Indication: APLASTIC ANAEMIA
     Dosage: 1 G, QD
     Route: 042
     Dates: start: 20090617, end: 20090619
  10. MICAFUNGIN SODIUM [Concomitant]
     Active Substance: MICAFUNGIN SODIUM
     Dosage: UNK
     Dates: start: 20090628, end: 20090629
  11. LANSOPRAZOLE. [Concomitant]
     Active Substance: LANSOPRAZOLE
     Indication: PROPHYLAXIS AGAINST GASTROINTESTINAL ULCER
     Dosage: UNK
     Dates: start: 20090617, end: 20090627
  12. URSODEOXYCHOLIC ACID [Concomitant]
     Active Substance: URSODIOL
     Indication: LIVER DISORDER
     Dosage: UNK
     Route: 065
     Dates: start: 20090624, end: 20090628
  13. PREDNISOLONE SODIUM SUCCINATE [Concomitant]
     Active Substance: PREDNISOLONE SODIUM SUCCINATE
     Indication: APLASTIC ANAEMIA
     Dosage: 60 MG, QD
     Route: 065
     Dates: start: 20090620, end: 20090624
  14. ATROPINE SULFATE. [Concomitant]
     Active Substance: ATROPINE SULFATE
     Dosage: UNK
     Dates: start: 20090629, end: 20090629
  15. PURSENNID [Concomitant]
     Active Substance: SENNOSIDES A AND B
  16. THYMOGLOBULINE [Suspect]
     Active Substance: LAPINE T-LYMPHOCYTE IMMUNE GLOBULIN
     Indication: APLASTIC ANAEMIA
     Dosage: 200 MG, QD
     Route: 042
     Dates: start: 20090625, end: 20090627
  17. METHYLPREDNISOLONE SODIUM SUCCINATE. [Concomitant]
     Active Substance: METHYLPREDNISOLONE SODIUM SUCCINATE
     Indication: APLASTIC ANAEMIA
     Dosage: 500 MG, QD
     Route: 065
     Dates: start: 20090628, end: 20090629
  18. FILGRASTIM [Concomitant]
     Active Substance: FILGRASTIM
     Indication: APLASTIC ANAEMIA
     Dosage: 600 U/G, QD DOSE:600 U/G
     Route: 042
     Dates: start: 20090627, end: 20090629
  19. SENNOSIDE A+B CALCIUM [Concomitant]
     Active Substance: SENNOSIDES A AND B
     Indication: CONSTIPATION
     Dosage: UNK
     Dates: start: 20090624, end: 20090625
  20. CLOSTRIDIUM BUTYRICUM [Concomitant]
     Active Substance: CLOSTRIDIUM BUTYRICUM SPORES STRAIN M-55
     Indication: DIARRHOEA
     Dosage: UNK
     Route: 065
     Dates: start: 20090626, end: 20090628

REACTIONS (13)
  - Gastrointestinal haemorrhage [Fatal]
  - Disseminated intravascular coagulation [Fatal]
  - Chills [Unknown]
  - Diarrhoea [Not Recovered/Not Resolved]
  - Cardiomyopathy [Not Recovered/Not Resolved]
  - Intra-abdominal haemorrhage [Fatal]
  - Gastrointestinal necrosis [Fatal]
  - Nausea [Unknown]
  - Sepsis [Not Recovered/Not Resolved]
  - Pyrexia [Unknown]
  - Acute kidney injury [Fatal]
  - Blood pressure decreased [Not Recovered/Not Resolved]
  - Febrile neutropenia [Not Recovered/Not Resolved]

NARRATIVE: CASE EVENT DATE: 20090628
